FAERS Safety Report 4630041-0 (Version None)
Quarter: 2005Q2

REPORT INFORMATION
  Report Type: 
  Country: None (occurrence: None)
  Receive Date: 20050408
  Receipt Date: 20050329
  Transmission Date: 20051028
  Serious: Yes (Hospitalization)
  Sender: FDA-Public Use
  Company Number: ES-ROCHE-399990

PATIENT
  Age: 80 Year
  Sex: Male
  Weight: 75 kg

DRUGS (6)
  1. NAPROSYN [Suspect]
     Indication: DRUG USE FOR UNKNOWN INDICATION
     Route: 048
     Dates: start: 20050122, end: 20050122
  2. SINTROM [Suspect]
     Indication: DRUG USE FOR UNKNOWN INDICATION
     Dosage: TREATED LONG TERM.
     Route: 048
  3. CEFONICID SODIUM [Suspect]
     Dosage: DRUG REPORTED AS CEFONICID SODIUM + WATER/CEFONICID ALTER.
     Route: 030
     Dates: start: 20050117, end: 20050121
  4. AMIODARONE HYDROCHLORIDE [Concomitant]
     Dosage: TREATED LONG TERM.
     Route: 048
  5. OMEPRAZOLE [Concomitant]
     Indication: DRUG USE FOR UNKNOWN INDICATION
     Dosage: TREATED LONG TERM. DRUG REPORTED AS OMPERAZOL ACYFABRIK.
     Route: 048
  6. SEGURIL [Concomitant]
     Dosage: TREATED LONG TERM.
     Route: 048

REACTIONS (1)
  - EPISTAXIS [None]
